FAERS Safety Report 14296389 (Version 1)
Quarter: 2017Q4

REPORT INFORMATION
  Report Type: Spontaneous
  Country: US (occurrence: US)
  Receive Date: 20171215
  Receipt Date: 20171215
  Transmission Date: 20180321
  Serious: Yes (Other)
  Sender: FDA-Public Use
  Company Number: None

PATIENT
  Age: 27 Year
  Sex: Female
  Weight: 81.65 kg

DRUGS (1)
  1. BUPRENORPHINE/NALOXONE 8/2MG SL TABS [Suspect]
     Active Substance: BUPRENORPHINE\NALOXONE
     Indication: DRUG DEPENDENCE
     Dosage: 8/2MG PER TABLET BID SUBLINGUAL
     Route: 060
     Dates: start: 20171206

REACTIONS (3)
  - Therapy non-responder [None]
  - Constipation [None]
  - Headache [None]

NARRATIVE: CASE EVENT DATE: 20171215
